FAERS Safety Report 25110374 (Version 1)
Quarter: 2025Q1

REPORT INFORMATION
  Report Type: Spontaneous
  Country: US (occurrence: US)
  Receive Date: 20250324
  Receipt Date: 20250324
  Transmission Date: 20250409
  Serious: No
  Sender: ZYDUS PHARM
  Company Number: US-CADILA HEALTHCARE LIMITED-US-ZYDUS-119708

PATIENT

DRUGS (3)
  1. ANASTROZOLE [Suspect]
     Active Substance: ANASTROZOLE
     Indication: Breast cancer
     Route: 065
     Dates: start: 202011, end: 202412
  2. ANASTROZOLE [Suspect]
     Active Substance: ANASTROZOLE
     Route: 065
     Dates: start: 202501
  3. ANASTROZOLE [Suspect]
     Active Substance: ANASTROZOLE
     Route: 065
     Dates: start: 202502

REACTIONS (2)
  - Arthralgia [Not Recovered/Not Resolved]
  - Alopecia [Not Recovered/Not Resolved]

NARRATIVE: CASE EVENT DATE: 20240901
